FAERS Safety Report 15958314 (Version 1)
Quarter: 2019Q1

REPORT INFORMATION
  Report Type: Spontaneous
  Country: US (occurrence: US)
  Receive Date: 20190213
  Receipt Date: 20190213
  Transmission Date: 20190417
  Serious: No
  Sender: FDA-Public Use
  Company Number: US-GE HEALTHCARE LIFE SCIENCES-2019CSU000451

PATIENT
  Age: 58 Year
  Sex: Male

DRUGS (6)
  1. MYOVIEW [Suspect]
     Active Substance: TECHNETIUM TC-99M TETROFOSMIN
     Indication: PRODUCT USED FOR UNKNOWN INDICATION
     Dosage: 267 MBQ (7.2 MCI) , SINGLE
     Route: 065
     Dates: start: 20181214, end: 20181214
  2. MYOVIEW [Suspect]
     Active Substance: TECHNETIUM TC-99M TETROFOSMIN
     Dosage: 777 MBQ (21 MCI) , SINGLE
     Route: 065
     Dates: start: 20181214, end: 20181214
  3. TECHNETIUM TC 99M [Suspect]
     Active Substance: TECHNETIUM TC-99M
     Indication: PRODUCT USED FOR UNKNOWN INDICATION
  4. MYOVIEW [Suspect]
     Active Substance: TECHNETIUM TC-99M TETROFOSMIN
     Indication: CARDIAC STRESS TEST
     Dosage: 267 MBQ (7.2 MCI) , SINGLE
     Route: 065
     Dates: start: 20181214, end: 20181214
  5. TECHNETIUM TC 99M [Suspect]
     Active Substance: TECHNETIUM TC-99M
     Indication: CARDIAC STRESS TEST
     Dosage: UNK
     Route: 065
     Dates: start: 20181214, end: 20181214
  6. MYOVIEW [Suspect]
     Active Substance: TECHNETIUM TC-99M TETROFOSMIN
     Dosage: 777 MBQ (21 MCI) , SINGLE
     Route: 065
     Dates: start: 20181214, end: 20181214

REACTIONS (2)
  - Drug ineffective [Recovered/Resolved]
  - No adverse event [Recovered/Resolved]

NARRATIVE: CASE EVENT DATE: 20181214
